FAERS Safety Report 10670686 (Version 2)
Quarter: 2014Q4

REPORT INFORMATION
  Report Type: Spontaneous
  Country: US (occurrence: US)
  Receive Date: 20141223
  Receipt Date: 20141223
  Transmission Date: 20150529
  Serious: No
  Sender: FDA-Public Use
  Company Number: US-PFIZER INC-2014305098

PATIENT
  Age: 72 Year
  Sex: Male

DRUGS (6)
  1. LANOXIN [Concomitant]
     Active Substance: DIGOXIN
     Dosage: 0.125 MG, UNK
     Dates: start: 201410
  2. TAMSULOSIN [Concomitant]
     Active Substance: TAMSULOSIN
     Dosage: UNK (MIN DOSE)
     Dates: start: 2013
  3. ATENOLOL. [Suspect]
     Active Substance: ATENOLOL
     Dosage: 0.25 DF (1/4TH 25 MG), 2X/DAY
     Dates: start: 2013
  4. WARFARIN [Concomitant]
     Active Substance: WARFARIN
     Dosage: 4-5 MG
     Dates: start: 199706
  5. ATENOLOL. [Suspect]
     Active Substance: ATENOLOL
     Indication: HEART RATE
     Dosage: 25 MG, UNK
     Dates: start: 199707, end: 200506
  6. ATENOLOL. [Suspect]
     Active Substance: ATENOLOL
     Indication: BLOOD PRESSURE
     Dosage: 0.50 DF (1/2 TAB 25 MG), DAILY
     Dates: start: 2003

REACTIONS (5)
  - Fatigue [Recovered/Resolved]
  - Intentional product misuse [Unknown]
  - Blood pressure decreased [Recovered/Resolved]
  - Listless [Recovered/Resolved]
  - Feeling abnormal [Unknown]

NARRATIVE: CASE EVENT DATE: 2013
